FAERS Safety Report 17684033 (Version 1)
Quarter: 2020Q2

REPORT INFORMATION
  Report Type: Spontaneous
  Country: ES (occurrence: ES)
  Receive Date: 20200420
  Receipt Date: 20200420
  Transmission Date: 20200714
  Serious: Yes (Other)
  Sender: FDA-Public Use
  Company Number: ES-TEVA-2020-ES-1225781

PATIENT
  Sex: Male
  Weight: 67 kg

DRUGS (1)
  1. TAMSULOSINA [Suspect]
     Active Substance: TAMSULOSIN HYDROCHLORIDE
     Indication: BENIGN PROSTATIC HYPERPLASIA
     Dosage: .4 MILLIGRAM DAILY; AT NIGHT
     Route: 048
     Dates: start: 20200129

REACTIONS (1)
  - Retrograde ejaculation [Recovering/Resolving]

NARRATIVE: CASE EVENT DATE: 202001
